FAERS Safety Report 8419412-4 (Version None)
Quarter: 2012Q2

REPORT INFORMATION
  Report Type: 
  Country: None (occurrence: None)
  Receive Date: 20120607
  Receipt Date: 20120509
  Transmission Date: 20120825
  Serious: Yes (Other)
  Sender: FDA-Public Use
  Company Number: US-GLAXOSMITHKLINE-A0976979A

PATIENT
  Age: 59 Year
  Sex: Male

DRUGS (4)
  1. AVODART [Suspect]
     Indication: BENIGN PROSTATIC HYPERPLASIA
     Dosage: .5MG PER DAY
     Route: 048
     Dates: end: 20120401
  2. ANTI-ANXIETY MED- NAME UNKNOWN [Concomitant]
  3. DIABETES MEDICATION [Concomitant]
  4. MEDICATION FOR HIGH BLOOD PRESSURE [Concomitant]

REACTIONS (3)
  - FATIGUE [None]
  - ILL-DEFINED DISORDER [None]
  - PROSTATE CANCER [None]
